FAERS Safety Report 10258406 (Version 1)
Quarter: 2014Q2

REPORT INFORMATION
  Report Type: Spontaneous
  Country: US (occurrence: None)
  Receive Date: 20140623
  Receipt Date: 20140623
  Transmission Date: 20141212
  Serious: Yes (Hospitalization)
  Sender: FDA-Public Use
  Company Number: US-H14001-14-00085

PATIENT
  Age: 56 Year
  Sex: Male

DRUGS (5)
  1. LITHIUM CARBONATE (LITHIUM CARBONATE) [Suspect]
     Indication: BIPOLAR DISORDER
     Dosage: IN DIVIDED DOSES
  2. IBUPROFEN (IBUPROFEN) [Suspect]
     Indication: ARTHRALGIA
  3. LISINOPRIL (LISINOPRIL) (LISINOPRIL) [Concomitant]
  4. QUETIAPINE (QUETIAPINE) (QUETIAPINE) [Concomitant]
  5. RISPERIDONE [Concomitant]

REACTIONS (10)
  - Toxicity to various agents [None]
  - Dysarthria [None]
  - Ataxia [None]
  - Memory impairment [None]
  - Disorientation [None]
  - Confusional state [None]
  - Diarrhoea [None]
  - Tremor [None]
  - Heart rate increased [None]
  - Leukocytosis [None]
